FAERS Safety Report 14686233 (Version 1)
Quarter: 2018Q1

REPORT INFORMATION
  Report Type: Spontaneous
  Country: US (occurrence: US)
  Receive Date: 20180326
  Receipt Date: 20180326
  Transmission Date: 20180509
  Serious: Yes (Other)
  Sender: FDA-Public Use
  Company Number: None

PATIENT
  Age: 26 Year
  Sex: Female

DRUGS (1)
  1. SUCRALFATE. [Suspect]
     Active Substance: SUCRALFATE
     Indication: CHEST PAIN
     Dosage: ?          OTHER FREQUENCY:EVERYOTHERDAY;?
     Route: 048
     Dates: start: 20180301, end: 20180322

REACTIONS (1)
  - Chest pain [None]

NARRATIVE: CASE EVENT DATE: 20180301
